FAERS Safety Report 15499194 (Version 1)
Quarter: 2018Q4

REPORT INFORMATION
  Report Type: Spontaneous
  Country: US (occurrence: US)
  Receive Date: 20181015
  Receipt Date: 20181015
  Transmission Date: 20190205
  Serious: Yes (Other)
  Sender: FDA-Public Use
  Company Number: US-ROCHE-2197360

PATIENT
  Sex: Female
  Weight: 86.26 kg

DRUGS (4)
  1. AVASTIN [Suspect]
     Active Substance: BEVACIZUMAB
     Indication: MACULAR OEDEMA
     Dosage: ONGOING:NO
     Route: 065
  2. LUCENTIS [Suspect]
     Active Substance: RANIBIZUMAB
     Route: 050
  3. LUCENTIS [Suspect]
     Active Substance: RANIBIZUMAB
     Dosage: EVERY 7 TO 8 WEEKS
     Route: 050
  4. LUCENTIS [Suspect]
     Active Substance: RANIBIZUMAB
     Indication: MACULAR OEDEMA
     Dosage: INJECTION IN LEFT EYE ;ONGOING: NO
     Route: 050

REACTIONS (5)
  - Eye haemorrhage [Recovered/Resolved]
  - Intentional product use issue [Unknown]
  - Swelling [Unknown]
  - Off label use [Unknown]
  - Glaucoma [Not Recovered/Not Resolved]
